FAERS Safety Report 5213156-8 (Version None)
Quarter: 2007Q1

REPORT INFORMATION
  Report Type: 
  Country: None (occurrence: None)
  Receive Date: 20070118
  Receipt Date: 20070118
  Transmission Date: 20070707
  Serious: Yes (Hospitalization)
  Sender: FDA-Public Use
  Company Number: None

PATIENT
  Sex: Female
  Weight: 88.6 kg

DRUGS (4)
  1. BEVACIZUMAB (RHUMAB VEGF) [Suspect]
     Dosage: 440 MG
     Dates: end: 20070109
  2. CAMPTOSAR [Suspect]
     Dosage: 350 MG
     Dates: end: 20070109
  3. LEUCOVORIN CALCIUM [Suspect]
     Dosage: 780 MG
     Dates: end: 20070109
  4. FLUOROURACIL [Suspect]
     Dosage: 5460 MG
     Dates: end: 20070111

REACTIONS (1)
  - PULMONARY EMBOLISM [None]
